FAERS Safety Report 13121572 (Version 1)
Quarter: 2017Q1

REPORT INFORMATION
  Report Type: Spontaneous
  Country: US (occurrence: US)
  Receive Date: 20170114
  Receipt Date: 20170114
  Transmission Date: 20170428
  Serious: Yes (Other)
  Sender: FDA-Public Use
  Company Number: None

PATIENT
  Age: 48 Year
  Sex: Female
  Weight: 130.5 kg

DRUGS (7)
  1. LASIX GENERIC [Concomitant]
  2. POTASSIUM CHLORIDE. [Concomitant]
     Active Substance: POTASSIUM CHLORIDE
  3. VITAMIN D3 [Concomitant]
     Active Substance: CHOLECALCIFEROL
  4. ELIQUIS [Suspect]
     Active Substance: APIXABAN
     Indication: ATRIAL FIBRILLATION
     Dosage: ?          QUANTITY:1 TABLET(S);?
     Route: 048
     Dates: start: 20160401
  5. LISINOPRIL. [Concomitant]
     Active Substance: LISINOPRIL
  6. FISH OIL [Concomitant]
     Active Substance: FISH OIL
  7. CAREDIOL [Concomitant]

REACTIONS (6)
  - Headache [None]
  - Constipation [None]
  - Peripheral swelling [None]
  - Blood pressure increased [None]
  - Weight increased [None]
  - Menorrhagia [None]

NARRATIVE: CASE EVENT DATE: 20161101
